FAERS Safety Report 18268002 (Version 2)
Quarter: 2021Q3

REPORT INFORMATION
  Report Type: Spontaneous
  Country: US (occurrence: US)
  Receive Date: 20200915
  Receipt Date: 20210908
  Transmission Date: 20211014
  Serious: Yes (Hospitalization, Other)
  Sender: FDA-Public Use
  Company Number: US-ASTELLAS-2020US027860

PATIENT
  Age: 69 Year
  Sex: Male

DRUGS (8)
  1. XTANDI [Suspect]
     Active Substance: ENZALUTAMIDE
     Route: 048
     Dates: start: 202001, end: 20200722
  2. DULOXETINE HCL [Concomitant]
     Active Substance: DULOXETINE HYDROCHLORIDE
     Indication: PRODUCT USED FOR UNKNOWN INDICATION
     Route: 065
     Dates: start: 201807
  3. XTANDI [Suspect]
     Active Substance: ENZALUTAMIDE
     Indication: CHRONIC RECURRENT MULTIFOCAL OSTEOMYELITIS
     Route: 048
     Dates: start: 20190807
  4. MIRTAZAPINE. [Concomitant]
     Active Substance: MIRTAZAPINE
     Indication: PRODUCT USED FOR UNKNOWN INDICATION
     Route: 065
     Dates: start: 201807
  5. BUPROPION HCL [Concomitant]
     Active Substance: BUPROPION HYDROCHLORIDE
     Indication: PRODUCT USED FOR UNKNOWN INDICATION
     Route: 065
     Dates: start: 201807
  6. FENOFIBRATE. [Concomitant]
     Active Substance: FENOFIBRATE
     Indication: PRODUCT USED FOR UNKNOWN INDICATION
     Route: 065
     Dates: start: 201807
  7. FLOMAX [Concomitant]
     Active Substance: TAMSULOSIN HYDROCHLORIDE
     Indication: PRODUCT USED FOR UNKNOWN INDICATION
     Dosage: 0.4 MG, TWICE DAILY
     Route: 065
     Dates: start: 201807
  8. PRIMIDONE. [Concomitant]
     Active Substance: PRIMIDONE
     Indication: PRODUCT USED FOR UNKNOWN INDICATION
     Route: 065
     Dates: start: 201807

REACTIONS (8)
  - Urinary tract infection [Unknown]
  - Haematuria [Unknown]
  - Gait disturbance [Unknown]
  - Dementia [Unknown]
  - Confusional state [Unknown]
  - Fall [Not Recovered/Not Resolved]
  - Off label use [Unknown]
  - Condition aggravated [Unknown]

NARRATIVE: CASE EVENT DATE: 20190708
